FAERS Safety Report 11689976 (Version 2)
Quarter: 2015Q4

REPORT INFORMATION
  Report Type: Spontaneous
  Country: JP (occurrence: JP)
  Receive Date: 20151102
  Receipt Date: 20151228
  Transmission Date: 20160304
  Serious: Yes (Other)
  Sender: FDA-Public Use
  Company Number: JP-PFIZER INC-2015369029

PATIENT
  Age: 46 Year
  Sex: Male

DRUGS (4)
  1. CAMPTO [Suspect]
     Active Substance: IRINOTECAN
     Indication: PANCREATIC CARCINOMA
     Dosage: 75 MG/M2, 1X/DAY (TOTAL OF 15 CYCLES)
     Route: 041
  2. 5-FU [Concomitant]
     Active Substance: FLUOROURACIL
     Dosage: UNK, (TOTAL OF 15 CYCLES)
  3. LEVOFOLINATE YAKULT [Suspect]
     Active Substance: LEVOLEUCOVORIN CALCIUM
     Indication: PANCREATIC CARCINOMA
     Dosage: UNK UNK, 1X/DAY (TOTAL OF 15 CYCLES)
     Route: 041
  4. ELPLAT [Suspect]
     Active Substance: OXALIPLATIN
     Indication: PANCREATIC CARCINOMA
     Dosage: UNK UNK, 1X/DAY (TOTAL OF 15 CYCLES)
     Route: 041

REACTIONS (1)
  - Neuropathy peripheral [Unknown]
